FAERS Safety Report 7580308-1 (Version None)
Quarter: 2011Q2

REPORT INFORMATION
  Report Type: 
  Country: None (occurrence: None)
  Receive Date: 20110629
  Receipt Date: 20110617
  Transmission Date: 20111010
  Serious: Yes (Death)
  Sender: FDA-Public Use
  Company Number: CA-ROCHE-760774

PATIENT
  Sex: Male
  Weight: 67 kg

DRUGS (5)
  1. ZOFRAN [Concomitant]
  2. BEVACIZUMAB [Suspect]
     Indication: GLIOBLASTOMA
     Route: 042
     Dates: start: 20110112
  3. DECADRON [Concomitant]
  4. TEMOZOLOMIDE [Concomitant]
     Indication: GLIOBLASTOMA
     Dates: end: 20110101
  5. PANTOPRAZOLE SODIUM [Concomitant]
     Dosage: DRUG NAME:PANTALOC

REACTIONS (3)
  - ABDOMINAL PAIN [None]
  - PNEUMONIA [None]
  - CEREBRAL HAEMORRHAGE [None]
